FAERS Safety Report 14080053 (Version 1)
Quarter: 2017Q4

REPORT INFORMATION
  Report Type: Spontaneous
  Country: US (occurrence: US)
  Receive Date: 20171012
  Receipt Date: 20171012
  Transmission Date: 20180321
  Serious: No
  Sender: FDA-Public Use
  Company Number: US-MYLANLABS-2017M1027359

PATIENT
  Age: 3 Year
  Sex: Male
  Weight: 15.87 kg

DRUGS (1)
  1. EPIPEN [Suspect]
     Active Substance: EPINEPHRINE
     Indication: PRODUCT USED FOR UNKNOWN INDICATION
     Dosage: UNK

REACTIONS (2)
  - Injection site coldness [Recovered/Resolved]
  - Accidental exposure to product by child [Recovered/Resolved]

NARRATIVE: CASE EVENT DATE: 20170204
